FAERS Safety Report 12108912 (Version 3)
Quarter: 2021Q3

REPORT INFORMATION
  Report Type: Other
  Country: IT (occurrence: IT)
  Receive Date: 20160224
  Receipt Date: 20210815
  Transmission Date: 20211014
  Serious: Yes (Death, Other)
  Sender: FDA-Public Use
  Company Number: IT-ROCHE-1570508

PATIENT

DRUGS (6)
  1. FLUOROURACIL. [Suspect]
     Active Substance: FLUOROURACIL
     Indication: COLORECTAL CANCER STAGE IV
     Route: 040
  2. OXALIPLATIN. [Suspect]
     Active Substance: OXALIPLATIN
     Indication: COLORECTAL CANCER STAGE IV
     Route: 042
  3. BEVACIZUMAB. [Suspect]
     Active Substance: BEVACIZUMAB
     Indication: COLORECTAL CANCER STAGE IV
     Route: 042
  4. FLUOROURACIL. [Suspect]
     Active Substance: FLUOROURACIL
     Route: 041
  5. FOLINIC ACID [Suspect]
     Active Substance: LEUCOVORIN
     Indication: COLORECTAL CANCER STAGE IV
     Route: 042
  6. CAPECITABINE. [Suspect]
     Active Substance: CAPECITABINE
     Indication: COLORECTAL CANCER STAGE IV
     Route: 048

REACTIONS (48)
  - Intestinal perforation [Unknown]
  - Hypersensitivity [Unknown]
  - Platelet count decreased [Unknown]
  - White blood cell count decreased [Unknown]
  - Syncope [Unknown]
  - Constipation [Unknown]
  - Dental caries [Unknown]
  - Hypertriglyceridaemia [Unknown]
  - Embolism [Unknown]
  - Atrial fibrillation [Unknown]
  - Anal fistula [Unknown]
  - Large intestinal obstruction [Unknown]
  - Diarrhoea [Unknown]
  - Nausea [Unknown]
  - Vomiting [Unknown]
  - Pelvic infection [Unknown]
  - Blood bilirubin increased [Unknown]
  - Peripheral motor neuropathy [Unknown]
  - Anaemia [Unknown]
  - Colonic fistula [Unknown]
  - Laryngospasm [Unknown]
  - Large intestine perforation [Fatal]
  - Abdominal infection [Unknown]
  - Paraesthesia [Unknown]
  - Hypotension [Unknown]
  - Oesophageal pain [Unknown]
  - Stomatitis [Unknown]
  - Rectal perforation [Fatal]
  - Pyrexia [Unknown]
  - Dysaesthesia [Unknown]
  - Febrile neutropenia [Unknown]
  - Retinal vascular disorder [Unknown]
  - Abdominal pain [Unknown]
  - Ileal perforation [Fatal]
  - Skin infection [Unknown]
  - Alanine aminotransferase increased [Unknown]
  - Dizziness [Unknown]
  - Neuralgia [Unknown]
  - Peripheral sensory neuropathy [Unknown]
  - Fatigue [Unknown]
  - Pain [Unknown]
  - Blood alkaline phosphatase increased [Unknown]
  - Neutrophil count decreased [Unknown]
  - Cognitive disorder [Unknown]
  - Cerebrovascular accident [Unknown]
  - Transient ischaemic attack [Unknown]
  - Palmar-plantar erythrodysaesthesia syndrome [Unknown]
  - Hypertension [Unknown]
